FAERS Safety Report 16689679 (Version 3)
Quarter: 2022Q1

REPORT INFORMATION
  Report Type: Spontaneous
  Country: CA (occurrence: CA)
  Receive Date: 20190809
  Receipt Date: 20220209
  Transmission Date: 20220423
  Serious: Yes (Hospitalization, Other)
  Sender: FDA-Public Use
  Company Number: CA-SAMSUNG BIOEPIS-SB-2019-21834

PATIENT
  Age: 42 Year
  Sex: Male
  Weight: 119 kg

DRUGS (4)
  1. INFLIXIMAB [Suspect]
     Active Substance: INFLIXIMAB
     Indication: Crohn^s disease
     Route: 042
  2. LOVENOX [Concomitant]
     Active Substance: ENOXAPARIN SODIUM
     Indication: Thrombophlebitis
     Dosage: UNKNOWN
     Route: 058
  3. PREDNISONE [Concomitant]
     Active Substance: PREDNISONE
     Indication: Product used for unknown indication
     Route: 048
  4. SOLU-MEDROL [Concomitant]
     Active Substance: METHYLPREDNISOLONE SODIUM SUCCINATE
     Indication: Product used for unknown indication
     Dosage: UNKNOWN
     Route: 042

REACTIONS (12)
  - Arthralgia [Unknown]
  - Body temperature fluctuation [Unknown]
  - Condition aggravated [Unknown]
  - Mobility decreased [Unknown]
  - Oedema peripheral [Unknown]
  - Thrombophlebitis [Unknown]
  - Blood pressure fluctuation [Unknown]
  - Discomfort [Unknown]
  - Peripheral swelling [Unknown]
  - Venous occlusion [Unknown]
  - Inappropriate schedule of product administration [Unknown]
  - Off label use [Unknown]
